FAERS Safety Report 8340511-X (Version None)
Quarter: 2012Q2

REPORT INFORMATION
  Report Type: 
  Country: None (occurrence: None)
  Receive Date: 20120507
  Receipt Date: 20120501
  Transmission Date: 20120825
  Serious: Yes (Hospitalization)
  Sender: FDA-Public Use
  Company Number: US-BAYER-2012-005347

PATIENT
  Age: 15 Year
  Sex: Female
  Weight: 81.633 kg

DRUGS (8)
  1. YASMIN [Suspect]
     Dosage: UNK
     Route: 048
     Dates: start: 20081101, end: 20090601
  2. BUSPAR [Concomitant]
  3. ADDERALL 5 [Concomitant]
     Dosage: UNK
     Dates: start: 20070101
  4. ZOLOFT [Concomitant]
     Dosage: UNK
     Dates: start: 20070101
  5. DROSPIRENONE AND ETHINYL ESTRADIOL [Suspect]
     Dosage: UNK
     Route: 048
     Dates: start: 20081101, end: 20090601
  6. TENEX [Concomitant]
  7. WELLBUTRIN [Concomitant]
     Indication: DEPRESSION
     Dosage: UNK
     Dates: start: 20070101
  8. KEFLEX [Concomitant]
     Indication: CELLULITIS

REACTIONS (7)
  - PAIN [None]
  - GENERAL PHYSICAL HEALTH DETERIORATION [None]
  - INJURY [None]
  - DEEP VEIN THROMBOSIS [None]
  - MENTAL DISORDER [None]
  - EMOTIONAL DISTRESS [None]
  - ANXIETY [None]
